FAERS Safety Report 20894847 (Version 1)
Quarter: 2022Q2

REPORT INFORMATION
  Report Type: Spontaneous
  Country: JP (occurrence: JP)
  Receive Date: 20220531
  Receipt Date: 20220531
  Transmission Date: 20220721
  Serious: Yes (Hospitalization, Other)
  Sender: FDA-Public Use
  Company Number: JP-ORPHANEU-2022002245

PATIENT

DRUGS (1)
  1. SIGNIFOR LAR [Suspect]
     Active Substance: PASIREOTIDE PAMOATE
     Indication: Pituitary-dependent Cushing^s syndrome
     Dosage: UNK

REACTIONS (3)
  - Hepatic enzyme increased [Recovering/Resolving]
  - Metastases to bone [Recovering/Resolving]
  - Metastases to liver [Recovering/Resolving]
